FAERS Safety Report 9230664 (Version 2)
Quarter: 2013Q2

REPORT INFORMATION
  Report Type: Spontaneous
  Country: US (occurrence: None)
  Receive Date: 20121031
  Receipt Date: 20130107
  Transmission Date: 20140414
  Serious: No
  Sender: FDA-Public Use
  Company Number: PHEH2012US016704

PATIENT
  Age: 47 Year
  Sex: Female

DRUGS (4)
  1. GILENYA (FTY) CAPSULE, 0.5MG [Suspect]
     Indication: MULTIPLE SCLEROSIS
     Route: 048
     Dates: start: 2002, end: 20120823
  2. AMANTADINE (AMANTADINE) [Concomitant]
  3. ALENE (EPIMESTROL) [Concomitant]
  4. CALCIUM PANTOTHENATE (CALCIUM PANTOTHENATE) [Concomitant]

REACTIONS (11)
  - Abdominal pain [None]
  - Arthralgia [None]
  - Pain in extremity [None]
  - Headache [None]
  - Migraine [None]
  - Multiple sclerosis [None]
  - Hypoaesthesia [None]
  - Visual impairment [None]
  - Eye pain [None]
  - Nausea [None]
  - Overdose [None]
